FAERS Safety Report 9130050 (Version 1)
Quarter: 2013Q1

REPORT INFORMATION
  Report Type: Spontaneous
  Country: US (occurrence: US)
  Receive Date: 20130125
  Receipt Date: 20130125
  Transmission Date: 20140127
  Serious: Yes (Other)
  Sender: FDA-Public Use
  Company Number: US-BAXTER-2013BAX001593

PATIENT
  Age: 20 Year
  Sex: Male

DRUGS (2)
  1. ADVATE [Suspect]
     Indication: FACTOR VIII DEFICIENCY
     Dosage: 100 % CORRECTION
     Route: 065
  2. ADVATE [Suspect]
     Dosage: 50% FVIII DOSE
     Route: 065

REACTIONS (2)
  - Factor VIII inhibition [Recovered/Resolved]
  - Gastrointestinal haemorrhage [Recovered/Resolved]
